FAERS Safety Report 5063420-0 (Version None)
Quarter: 2006Q3

REPORT INFORMATION
  Report Type: 
  Country: None (occurrence: None)
  Receive Date: 20060727
  Receipt Date: 20060719
  Transmission Date: 20061208
  Serious: Yes (Hospitalization)
  Sender: FDA-Public Use
  Company Number: IT-AVENTIS-200617508GDDC

PATIENT
  Age: 26 Year
  Sex: Male

DRUGS (1)
  1. DDAVP [Suspect]
     Indication: VON WILLEBRAND'S DISEASE
     Route: 058
     Dates: start: 20020901

REACTIONS (2)
  - DEEP VEIN THROMBOSIS [None]
  - POST PROCEDURAL COMPLICATION [None]
